FAERS Safety Report 11887132 (Version 1)
Quarter: 2016Q1

REPORT INFORMATION
  Report Type: Spontaneous
  Country: IN (occurrence: IN)
  Receive Date: 20160104
  Receipt Date: 20160104
  Transmission Date: 20160526
  Serious: Yes (Hospitalization)
  Sender: FDA-Public Use
  Company Number: IN-IMPAX LABORATORIES, INC-2015-IPXL-01324

PATIENT
  Age: 18 Year
  Sex: Female

DRUGS (2)
  1. PHENYTOIN CHEWABLE [Suspect]
     Active Substance: PHENYTOIN
     Indication: GENERALISED TONIC-CLONIC SEIZURE
     Dosage: 200 MG, DAILY
     Route: 065
  2. PHENYTOIN CHEWABLE [Suspect]
     Active Substance: PHENYTOIN
     Dosage: 100 MG DAILY
     Route: 065

REACTIONS (11)
  - Nodule [Recovered/Resolved]
  - Blindness [Unknown]
  - Muscular weakness [Unknown]
  - Asthenia [Unknown]
  - Ataxia [Recovered/Resolved]
  - Vomiting [Recovered/Resolved]
  - Nystagmus [Recovered/Resolved]
  - Hirsutism [Recovering/Resolving]
  - Dizziness [Unknown]
  - Toxicity to various agents [Recovered/Resolved]
  - Gingival hypertrophy [Recovering/Resolving]
